FAERS Safety Report 4492051-6 (Version None)
Quarter: 2004Q4

REPORT INFORMATION
  Report Type: 
  Country: None (occurrence: None)
  Receive Date: 20041101
  Receipt Date: 20041022
  Transmission Date: 20050328
  Serious: Yes (Hospitalization)
  Sender: FDA-Public Use
  Company Number: 2004-113542-NL

PATIENT
  Age: 54 Year
  Sex: Male

DRUGS (8)
  1. MIRTAZAPINE [Suspect]
     Indication: ANXIETY
     Dosage: DF/DF/30 MG/45 MG
     Dates: start: 20020601, end: 20030729
  2. MIRTAZAPINE [Suspect]
     Indication: DEPRESSION
     Dosage: DF/DF/30 MG/45 MG
     Dates: start: 20020601, end: 20030729
  3. MIRTAZAPINE [Suspect]
     Indication: ANXIETY
     Dosage: DF/DF/30 MG/45 MG
     Dates: start: 20030825, end: 20030904
  4. MIRTAZAPINE [Suspect]
     Indication: DEPRESSION
     Dosage: DF/DF/30 MG/45 MG
     Dates: start: 20030825, end: 20030904
  5. MIRTAZAPINE [Suspect]
     Indication: ANXIETY
     Dosage: DF/DF/30 MG/45 MG
     Dates: start: 20030915, end: 20030916
  6. MIRTAZAPINE [Suspect]
     Indication: DEPRESSION
     Dosage: DF/DF/30 MG/45 MG
     Dates: start: 20030915, end: 20030916
  7. CIPROFLOXACIN [Concomitant]
  8. METRONIDAZOLE [Concomitant]

REACTIONS (3)
  - BILIARY TRACT DISORDER [None]
  - HEPATITIS [None]
  - POISONING [None]
